FAERS Safety Report 7283923-8 (Version None)
Quarter: 2011Q1

REPORT INFORMATION
  Report Type: 
  Country: None (occurrence: None)
  Receive Date: 20110209
  Receipt Date: 20110204
  Transmission Date: 20110831
  Serious: Yes (Hospitalization)
  Sender: FDA-Public Use
  Company Number: CHPA2011IT02342

PATIENT
  Sex: Male

DRUGS (1)
  1. IBUPROFEN [Suspect]
     Indication: OROPHARYNGEAL PAIN
     Dosage: 22 ML, QD
     Route: 048
     Dates: start: 20101110, end: 20101112

REACTIONS (8)
  - WEIGHT DECREASED [None]
  - MELAENA [None]
  - GASTRIC ULCER HAEMORRHAGE [None]
  - NAUSEA [None]
  - PYLORIC STENOSIS [None]
  - HAEMATEMESIS [None]
  - VOMITING [None]
  - GASTRITIS [None]
